FAERS Safety Report 4340391-3 (Version None)
Quarter: 2004Q2

REPORT INFORMATION
  Report Type: 
  Country: None (occurrence: None)
  Receive Date: 20040414
  Receipt Date: 20040402
  Transmission Date: 20050107
  Serious: Yes (Other)
  Sender: FDA-Public Use
  Company Number: US071457

PATIENT
  Age: 6 Month
  Sex: Female
  Weight: 5 kg

DRUGS (5)
  1. EPOGEN [Suspect]
     Indication: ANAEMIA
     Dosage: 200 IU, 3 IN 1 WEEKS, SC
     Route: 058
     Dates: start: 20040209
  2. ASPIRIN [Concomitant]
  3. FERROUS SULFATE TAB [Concomitant]
  4. FOLIC ACID [Concomitant]
  5. NYSTATIN [Concomitant]

REACTIONS (4)
  - BLOOD PRESSURE INCREASED [None]
  - HAEMOGLOBIN DECREASED [None]
  - MEDICATION ERROR [None]
  - PLATELET COUNT INCREASED [None]
